FAERS Safety Report 12456239 (Version 1)
Quarter: 2016Q2

REPORT INFORMATION
  Report Type: Spontaneous
  Country: DK (occurrence: FR)
  Receive Date: 20160610
  Receipt Date: 20160610
  Transmission Date: 20160815
  Serious: Yes (Hospitalization)
  Sender: FDA-Public Use
  Company Number: FR-FRI-1000085209

PATIENT
  Age: 65 Year
  Sex: Female
  Weight: 52.2 kg

DRUGS (6)
  1. JOSACINE [Suspect]
     Active Substance: JOSAMYCIN
     Indication: PHARYNGITIS
     Route: 048
     Dates: start: 20160413, end: 20160424
  2. ZECLAR [Suspect]
     Active Substance: CLARITHROMYCIN
     Indication: PHARYNGITIS
     Dosage: 500 MG
     Route: 048
     Dates: start: 20160405, end: 20160410
  3. POLERY (ACONITE TINCTURE\BELLADONNA LEAF\CODEINE\ETHYLMORPHINE HYDROCHLORIDE\POLYGALA TENUIFOLIA ROOT\SODIUM BENZOATE\SODIUM BROMIDE) [Suspect]
     Active Substance: ACONITE TINCTURE\BELLADONNA LEAF\CODEINE\ETHYLMORPHINE HYDROCHLORIDE\POLYGALA TENUIFOLIA ROOT\SODIUM BENZOATE\SODIUM BROMIDE
     Indication: PRODUCT USED FOR UNKNOWN INDICATION
     Route: 048
     Dates: start: 20160405, end: 20160424
  4. ALPRAZOLAM. [Suspect]
     Active Substance: ALPRAZOLAM
     Indication: PRODUCT USED FOR UNKNOWN INDICATION
     Route: 048
     Dates: start: 20160405, end: 20160426
  5. ESCITALOPRAM [Suspect]
     Active Substance: ESCITALOPRAM OXALATE
     Indication: PRODUCT USED FOR UNKNOWN INDICATION
     Route: 048
     Dates: start: 20160405, end: 20160426
  6. MUCOTHIOL [Suspect]
     Active Substance: CARBOCYSTEINE
     Indication: PRODUCT USED FOR UNKNOWN INDICATION
     Route: 048
     Dates: start: 20160413, end: 20160426

REACTIONS (2)
  - Drug reaction with eosinophilia and systemic symptoms [Recovering/Resolving]
  - Anaemia [None]

NARRATIVE: CASE EVENT DATE: 201604
